FAERS Safety Report 9650747 (Version 3)
Quarter: 2014Q2

REPORT INFORMATION
  Report Type: Spontaneous
  Country: US (occurrence: US)
  Receive Date: 20131029
  Receipt Date: 20140522
  Transmission Date: 20141212
  Serious: Yes (Other)
  Sender: FDA-Public Use
  Company Number: US-AMGEN-USASP2013074844

PATIENT
  Age: 90 Year
  Sex: Male
  Weight: 74 kg

DRUGS (3)
  1. XGEVA [Suspect]
     Indication: PROPHYLAXIS
     Dosage: 120,  QMO
     Route: 058
     Dates: start: 20111128, end: 20130828
  2. CALCIUM + VITAMIN D                /01483701/ [Concomitant]
     Indication: PROPHYLAXIS
     Dosage: UNK
     Route: 048
     Dates: start: 20111128
  3. CYCLOPHOSPHAMIDE [Concomitant]
     Dosage: 50-100 MG, QD
     Route: 048

REACTIONS (2)
  - Osteonecrosis of jaw [Unknown]
  - Pain in jaw [Recovered/Resolved]
